FAERS Safety Report 13300790 (Version 5)
Quarter: 2017Q2

REPORT INFORMATION
  Report Type: Other
  Country: DE (occurrence: DE)
  Receive Date: 20170307
  Receipt Date: 20170526
  Transmission Date: 20170830
  Serious: Yes (Other)
  Sender: FDA-Public Use
  Company Number: DE-SHIRE-DE201620168

PATIENT
  Age: 56 Year
  Sex: Female
  Weight: 82 kg

DRUGS (8)
  1. IMODIUM [Concomitant]
     Active Substance: LOPERAMIDE HYDROCHLORIDE
     Indication: PRODUCT USED FOR UNKNOWN INDICATION
     Dosage: UNK, 4X/DAY:QID (1 MORNINGS, NOON, EVENINGS AND AT NIGHT)
     Route: 065
  2. PRAMIPEXOLE. [Concomitant]
     Active Substance: PRAMIPEXOLE
     Indication: PRODUCT USED FOR UNKNOWN INDICATION
     Dosage: 0.18 MG, 1X/DAY:QD (ONE MORNINGS)
     Route: 065
  3. REVESTIVE [Suspect]
     Active Substance: TEDUGLUTIDE
     Indication: SHORT-BOWEL SYNDROME
     Dosage: 0.21 UNK, UNK
     Route: 058
     Dates: end: 20170517
  4. REVESTIVE [Suspect]
     Active Substance: TEDUGLUTIDE
     Dosage: 0.4 ML, UNKNOWN
     Route: 058
     Dates: start: 20161128
  5. REVESTIVE [Suspect]
     Active Substance: TEDUGLUTIDE
     Dosage: UNK, UNKNOWN
     Route: 058
     Dates: start: 2017
  6. OMEPRAZOL [Concomitant]
     Active Substance: OMEPRAZOLE
     Indication: PRODUCT USED FOR UNKNOWN INDICATION
     Dosage: 20 MG, 2X/DAY:BID (2 MORNINGS)
     Route: 065
  7. REVESTIVE [Suspect]
     Active Substance: TEDUGLUTIDE
     Dosage: 0.42 ML, UNKNOWN
     Route: 058
     Dates: start: 2017
  8. IMUREK [Concomitant]
     Active Substance: AZATHIOPRINE
     Indication: PRODUCT USED FOR UNKNOWN INDICATION
     Dosage: 50 MG, 3X/DAY:TID (1 MORNINGS, NOON, EVENINGS)
     Route: 065

REACTIONS (6)
  - Decreased appetite [Recovered/Resolved]
  - Stoma site haemorrhage [Not Recovered/Not Resolved]
  - Fatigue [Recovered/Resolved]
  - Abdominal pain [Unknown]
  - Gastrointestinal stoma complication [Unknown]
  - Stoma site extravasation [Unknown]

NARRATIVE: CASE EVENT DATE: 20161216
